FAERS Safety Report 8451636-2 (Version None)
Quarter: 2012Q2

REPORT INFORMATION
  Report Type: 
  Country: None (occurrence: None)
  Receive Date: 20120620
  Receipt Date: 20120310
  Transmission Date: 20120825
  Serious: No
  Sender: FDA-Public Use
  Company Number: US-VERTEX PHARMACEUTICALS INC.-AE-2012-003483

PATIENT
  Sex: Male
  Weight: 84.898 kg

DRUGS (11)
  1. INCIVEK [Suspect]
     Indication: HEPATITIS C
     Route: 048
     Dates: start: 20120305
  2. PEGINTERFERON ALFA-2A [Concomitant]
     Indication: HEPATITIS C
     Route: 058
     Dates: start: 20120305
  3. EFFEXOR [Concomitant]
  4. OMEPRAZOLE [Concomitant]
     Indication: DYSPEPSIA
  5. AMBIEN [Concomitant]
     Route: 048
  6. LISINOPRIL [Concomitant]
     Indication: HYPERTENSION
  7. ASCORBIC ACID [Concomitant]
  8. RIBAVIRIN [Concomitant]
     Indication: HEPATITIS C
     Route: 048
     Dates: start: 20120305
  9. MULTI-VITAMINS [Concomitant]
  10. NADOLOL [Concomitant]
     Indication: VARICES OESOPHAGEAL
  11. VITAMIN E [Concomitant]

REACTIONS (1)
  - ANORECTAL DISCOMFORT [None]
